FAERS Safety Report 4336647-0 (Version None)
Quarter: 2004Q2

REPORT INFORMATION
  Report Type: 
  Country: None (occurrence: None)
  Receive Date: 20040408
  Receipt Date: 20040331
  Transmission Date: 20050107
  Serious: Yes (Death, Life-Threatening, Other)
  Sender: FDA-Public Use
  Company Number: 2004206522US

PATIENT
  Age: 16 Year
  Sex: Female
  Weight: 50 kg

DRUGS (4)
  1. GENOTROPIN [Suspect]
     Indication: HYPOPITUITARISM
     Dosage: 9.8 MG, 7 INJECTIONS WEEKLY, SUBCUTANEOUS
     Route: 058
     Dates: start: 20011031, end: 20031215
  2. DDAVP [Concomitant]
  3. CALCIUM [Concomitant]
  4. CORTEF [Concomitant]

REACTIONS (3)
  - DISEASE PROGRESSION [None]
  - NEOPLASM RECURRENCE [None]
  - OPTIC NERVE GLIOMA [None]
